FAERS Safety Report 19199603 (Version 1)
Quarter: 2021Q2

REPORT INFORMATION
  Report Type: Spontaneous
  Country: US (occurrence: US)
  Receive Date: 20210429
  Receipt Date: 20210429
  Transmission Date: 20210717
  Serious: Yes (Life-Threatening, Hospitalization)
  Sender: FDA-Public Use
  Company Number: None

PATIENT
  Age: 38 Year
  Sex: Female
  Weight: 64.13 kg

DRUGS (1)
  1. ACTEMRA [Suspect]
     Active Substance: TOCILIZUMAB
     Indication: RHEUMATOID ARTHRITIS
     Dosage: ?          OTHER FREQUENCY:WEEKLY;?
     Route: 058
     Dates: start: 20210128, end: 20210408

REACTIONS (5)
  - Nausea [None]
  - Therapeutic product effect incomplete [None]
  - Body temperature decreased [None]
  - Gastrointestinal ulcer haemorrhage [None]
  - Haematemesis [None]

NARRATIVE: CASE EVENT DATE: 20210408
